FAERS Safety Report 4264744-7 (Version None)
Quarter: 2004Q1

REPORT INFORMATION
  Report Type: 
  Country: None (occurrence: None)
  Receive Date: 20040105
  Receipt Date: 20031230
  Transmission Date: 20041129
  Serious: Yes (Other)
  Sender: FDA-Public Use
  Company Number: 2003192247US

PATIENT
  Age: 5 Year
  Sex: Female

DRUGS (1)
  1. CAMPTOSAR [Suspect]
     Dosage: 20 MG/M2 FOR 5 DAYS/WEEKLY

REACTIONS (1)
  - PULMONARY FIBROSIS [None]
